FAERS Safety Report 5309080-2 (Version None)
Quarter: 2007Q2

REPORT INFORMATION
  Report Type: 
  Country: None (occurrence: None)
  Receive Date: 20070426
  Receipt Date: 20070419
  Transmission Date: 20071010
  Serious: Yes (Disabling, Other)
  Sender: FDA-Public Use
  Company Number: US-MERCK-0609USA01226

PATIENT
  Age: 81 Year
  Sex: Female
  Weight: 60 kg

DRUGS (7)
  1. FOSAMAX [Suspect]
     Indication: OSTEOPOROSIS
     Route: 048
     Dates: start: 20010101, end: 20060606
  2. NEXIUM [Concomitant]
     Route: 048
  3. KLONOPIN [Concomitant]
     Route: 048
  4. LEVOXYL [Concomitant]
     Route: 065
  5. MECLIZINE HYDROCHLORIDE [Concomitant]
     Route: 048
  6. CALCIUM (UNSPECIFIED) [Concomitant]
     Route: 065
  7. CARTIA XT [Concomitant]
     Route: 048

REACTIONS (15)
  - ARTHRITIS [None]
  - ARTHROPATHY [None]
  - ATRIOVENTRICULAR BLOCK FIRST DEGREE [None]
  - CERVICAL POLYP [None]
  - CHEST PAIN [None]
  - ELECTROCARDIOGRAM POOR R-WAVE PROGRESSION [None]
  - FALL [None]
  - HYPERSENSITIVITY [None]
  - MALIGNANT MELANOMA IN SITU [None]
  - MENISCUS LESION [None]
  - OSTEOMALACIA [None]
  - OSTEONECROSIS [None]
  - PAIN [None]
  - RESTLESS LEGS SYNDROME [None]
  - TRIGGER FINGER [None]
